FAERS Safety Report 8831093 (Version 1)
Quarter: 2012Q4

REPORT INFORMATION
  Report Type: 
  Country: AT (occurrence: AT)
  Receive Date: 20121009
  Receipt Date: 20121009
  Transmission Date: 20130627
  Serious: Yes (Other)
  Sender: FDA-Public Use
  Company Number: AT-PFIZER INC-2012243574

PATIENT
  Age: 29 Year
  Sex: Female

DRUGS (18)
  1. XANOR [Suspect]
     Dosage: 1.5 mg, UNK
     Dates: start: 20120729, end: 20120806
  2. XANOR [Suspect]
     Dosage: 1 mg, UNK
     Dates: start: 20120807, end: 20120816
  3. XANOR [Suspect]
     Dosage: 0.25 mg, UNK
     Dates: start: 20120817, end: 20120817
  4. LYRICA [Suspect]
     Dosage: 100 mg, UNK
     Dates: start: 20120808, end: 20120810
  5. LYRICA [Suspect]
     Dosage: 200 mg, UNK
     Dates: start: 20120811, end: 20120812
  6. LYRICA [Suspect]
     Dosage: 300 mg, UNK
     Dates: start: 20120813, end: 20120819
  7. LYRICA [Suspect]
     Dosage: 425 mg, UNK
     Dates: start: 20120820, end: 20120823
  8. LYRICA [Suspect]
     Dosage: 450 mg, UNK
     Dates: start: 20120824, end: 20120917
  9. LYRICA [Suspect]
     Dosage: 600 mg, UNK
     Dates: start: 20120918
  10. ZELDOX [Suspect]
     Dosage: 40 mg, UNK
     Dates: start: 20120817, end: 20120818
  11. ZELDOX [Suspect]
     Dosage: 120 mg, UNK
     Dates: start: 20120820, end: 20120918
  12. ZELDOX [Suspect]
     Dosage: 160 mg, UNK
     Dates: start: 20120919
  13. RISPERDAL [Suspect]
     Dosage: 6 mg, UNK
     Dates: start: 20120729, end: 20120808
  14. RISPERDAL [Suspect]
     Dosage: 4 mg, UNK
     Dates: start: 20120809, end: 20120821
  15. SOLIAN [Suspect]
     Dosage: 400 mg, UNK
     Dates: start: 20120729, end: 20120809
  16. SOLIAN [Suspect]
     Dosage: 200 mg, UNK
     Dates: start: 20120810, end: 20120813
  17. DOMINAL [Suspect]
     Dosage: 160 mg, UNK
     Dates: start: 20120729, end: 20120905
  18. AKINETON RETARD [Suspect]
     Dosage: 4 mg, UNK
     Dates: start: 20120830

REACTIONS (1)
  - Dyskinesia [Recovering/Resolving]
